FAERS Safety Report 17613894 (Version 2)
Quarter: 2020Q2

REPORT INFORMATION
  Report Type: Spontaneous
  Country: CA (occurrence: CA)
  Receive Date: 20200402
  Receipt Date: 20200513
  Transmission Date: 20200713
  Serious: Yes (Other)
  Sender: FDA-Public Use
  Company Number: CA-ROCHE-2574507

PATIENT
  Age: 53 Year
  Sex: Female

DRUGS (11)
  1. ZOLOFT [Concomitant]
     Active Substance: SERTRALINE HYDROCHLORIDE
     Indication: POST-TRAUMATIC STRESS DISORDER
     Dosage: UNK
     Route: 065
     Dates: start: 201708
  2. XOLAIR [Suspect]
     Active Substance: OMALIZUMAB
     Dosage: UNK
     Route: 058
     Dates: start: 20170427
  3. XOLAIR [Suspect]
     Active Substance: OMALIZUMAB
     Route: 058
     Dates: start: 20180310
  4. XOLAIR [Suspect]
     Active Substance: OMALIZUMAB
     Route: 058
     Dates: start: 20190719
  5. XOLAIR [Suspect]
     Active Substance: OMALIZUMAB
     Route: 058
     Dates: start: 20170503
  6. XOLAIR [Suspect]
     Active Substance: OMALIZUMAB
     Dosage: UNK
     Route: 058
     Dates: start: 20170525
  7. XOLAIR [Suspect]
     Active Substance: OMALIZUMAB
     Indication: CHRONIC SPONTANEOUS URTICARIA
     Route: 058
     Dates: start: 20150216
  8. XOLAIR [Suspect]
     Active Substance: OMALIZUMAB
     Route: 058
     Dates: start: 20180703
  9. XOLAIR [Suspect]
     Active Substance: OMALIZUMAB
     Route: 058
     Dates: start: 20200424
  10. XOLAIR [Suspect]
     Active Substance: OMALIZUMAB
     Route: 058
     Dates: start: 20200224
  11. XOLAIR [Suspect]
     Active Substance: OMALIZUMAB
     Route: 058
     Dates: start: 20190819

REACTIONS (15)
  - Diarrhoea [Unknown]
  - Anal incontinence [Recovering/Resolving]
  - Drug hypersensitivity [Recovering/Resolving]
  - Anxiety [Recovering/Resolving]
  - Wrist fracture [Unknown]
  - Angioedema [Unknown]
  - Arthralgia [Unknown]
  - Spinal pain [Unknown]
  - Urticaria [Not Recovered/Not Resolved]
  - Swollen tongue [Recovering/Resolving]
  - Swelling [Unknown]
  - Pruritus [Unknown]
  - Weight decreased [Unknown]
  - Pharyngitis streptococcal [Unknown]
  - Malaise [Unknown]

NARRATIVE: CASE EVENT DATE: 201705
